FAERS Safety Report 4519317-5 (Version None)
Quarter: 2004Q4

REPORT INFORMATION
  Report Type: 
  Country: None (occurrence: None)
  Receive Date: 20041206
  Receipt Date: 20041126
  Transmission Date: 20050328
  Serious: Yes (Other)
  Sender: FDA-Public Use
  Company Number: GB-GLAXOSMITHKLINE-B0358402A

PATIENT
  Age: 63 Year
  Sex: Female
  Weight: 65 kg

DRUGS (4)
  1. ZYBAN [Suspect]
     Dosage: 150MG UNKNOWN
     Route: 048
     Dates: start: 20041102, end: 20041116
  2. NITRAZEPAM [Concomitant]
     Indication: INSOMNIA
     Dosage: 5MG PER DAY
     Route: 048
     Dates: start: 19870101
  3. BECLOMETHASONE DIPROPIONATE [Concomitant]
     Indication: ASTHMA
     Dosage: 100MCG PER DAY
     Dates: start: 19960101
  4. ALBUTEROL [Concomitant]
     Indication: ASTHMA
     Dosage: 100MCG PER DAY
     Dates: start: 19960101

REACTIONS (2)
  - HEADACHE [None]
  - VITREOUS FLOATERS [None]
